FAERS Safety Report 6160566-0 (Version None)
Quarter: 2009Q2

REPORT INFORMATION
  Report Type: 
  Country: None (occurrence: None)
  Receive Date: 20090416
  Receipt Date: 20090407
  Transmission Date: 20091009
  Serious: Yes (Hospitalization)
  Sender: FDA-Public Use
  Company Number: 2009US001036

PATIENT
  Age: 48 Year
  Sex: Male
  Weight: 85.3 kg

DRUGS (1)
  1. AMEVIVE [Suspect]
     Indication: GUTTATE PSORIASIS
     Dosage: 15 MG, WEEKLY, INTRAMUSCULAR
     Route: 030
     Dates: start: 20050415

REACTIONS (2)
  - CELLULITIS [None]
  - MYOCARDIAL INFARCTION [None]
